FAERS Safety Report 6302021-0 (Version None)
Quarter: 2009Q3

REPORT INFORMATION
  Report Type: 
  Country: None (occurrence: None)
  Receive Date: 20090807
  Receipt Date: 20090803
  Transmission Date: 20100115
  Serious: Yes (Hospitalization, Other)
  Sender: FDA-Public Use
  Company Number: US-TEVA-204947USA

PATIENT

DRUGS (4)
  1. FUROSEMIDE TABLETS USP, 20MG AND 40MG [Suspect]
     Indication: FLUID RETENTION
     Route: 064
  2. XYLOCAINE W/ EPINEPHRINE [Suspect]
     Route: 064
  3. XYLOCAINE W/ EPINEPHRINE [Suspect]
  4. DIGOXIN [Concomitant]

REACTIONS (1)
  - BRADYCARDIA FOETAL [None]
